FAERS Safety Report 5049645-9 (Version None)
Quarter: 2006Q2

REPORT INFORMATION
  Report Type: 
  Country: None (occurrence: None)
  Receive Date: 20060614
  Receipt Date: 20060302
  Transmission Date: 20061013
  Serious: Yes (Other)
  Sender: FDA-Public Use
  Company Number: 439104

PATIENT
  Age: 69 Year
  Sex: Female

DRUGS (6)
  1. BONIVA [Suspect]
     Indication: OSTEOPOROSIS
     Dosage: 1 PER MONTH ORAL
     Route: 048
     Dates: start: 20060215
  2. NORVASC [Concomitant]
  3. CRESTOR [Concomitant]
  4. QUININE SULFATE [Concomitant]
  5. CENTRUM SILVER (MINERALS NOS/MULTIVITAMIN NOS) [Concomitant]
  6. ASPIRIN [Concomitant]

REACTIONS (1)
  - CONTUSION [None]
